FAERS Safety Report 7435690-2 (Version None)
Quarter: 2011Q2

REPORT INFORMATION
  Report Type: 
  Country: None (occurrence: None)
  Receive Date: 20110425
  Receipt Date: 20110415
  Transmission Date: 20111010
  Serious: Yes (Life-Threatening)
  Sender: FDA-Public Use
  Company Number: PHHY2011IT02173

PATIENT
  Sex: Female

DRUGS (5)
  1. ADALAT [Concomitant]
     Dosage: 20 MG, UNK
  2. TRACLEER [Concomitant]
     Dosage: 125 MG, UNK
  3. ASPIRIN [Concomitant]
     Dosage: 1 DF, UNK
  4. GLEEVEC [Suspect]
     Indication: SCLERODERMA
     Dosage: 200 MG, UNK
     Dates: start: 20100526, end: 20101126
  5. TRIATEC [Concomitant]
     Dosage: 5 MG, UNK

REACTIONS (6)
  - DYSPNOEA [None]
  - TACHYPNOEA [None]
  - HYPOXIA [None]
  - RESPIRATORY TRACT INFECTION [None]
  - COUGH [None]
  - HYPERPYREXIA [None]
